FAERS Safety Report 9767036 (Version 1)
Quarter: 2013Q4

REPORT INFORMATION
  Report Type: Spontaneous
  Country: US (occurrence: US)
  Receive Date: 20131217
  Receipt Date: 20131217
  Transmission Date: 20140711
  Serious: No
  Sender: FDA-Public Use
  Company Number: US-GLAXOSMITHKLINE-A1037377A

PATIENT
  Age: 80 Year
  Sex: Female

DRUGS (16)
  1. VOTRIENT [Suspect]
     Indication: ILL-DEFINED DISORDER
     Dosage: 800MG PER DAY
     Route: 048
     Dates: start: 20130412
  2. JANUVIA [Concomitant]
  3. DOXYCYCLINE [Concomitant]
  4. CENTRUM SILVER [Concomitant]
  5. PROTONIX [Concomitant]
  6. FLUOXETINE [Concomitant]
  7. PREMARIN [Concomitant]
  8. TRAZODONE [Concomitant]
  9. SIMVASTATIN [Concomitant]
  10. SIMVASTATIN [Concomitant]
  11. RAMIPRIL [Concomitant]
  12. ASPIRIN [Concomitant]
  13. FERROUS SULFATE [Concomitant]
  14. VITAMIN C [Concomitant]
  15. LEVOTHYROXINE [Concomitant]
  16. ENABLEX [Concomitant]

REACTIONS (3)
  - Asthenia [Unknown]
  - Gait disturbance [Unknown]
  - Tremor [Unknown]
